FAERS Safety Report 18348790 (Version 1)
Quarter: 2020Q4

REPORT INFORMATION
  Report Type: Spontaneous
  Country: US (occurrence: US)
  Receive Date: 20201005
  Receipt Date: 20201005
  Transmission Date: 20210114
  Serious: Yes (Hospitalization)
  Sender: FDA-Public Use
  Company Number: None

PATIENT
  Age: 68 Year
  Sex: Male
  Weight: 58.5 kg

DRUGS (1)
  1. CAMPTOSAR [Suspect]
     Active Substance: IRINOTECAN HYDROCHLORIDE
     Dates: end: 20200908

REACTIONS (6)
  - Pyrexia [None]
  - Neutrophil count decreased [None]
  - Febrile neutropenia [None]
  - Sepsis [None]
  - Klebsiella test positive [None]
  - Therapy interrupted [None]

NARRATIVE: CASE EVENT DATE: 20200927
